FAERS Safety Report 21847185 (Version 2)
Quarter: 2024Q3

REPORT INFORMATION
  Report Type: Spontaneous
  Country: DE (occurrence: DE)
  Receive Date: 20230111
  Receipt Date: 20240826
  Transmission Date: 20241017
  Serious: Yes (Other)
  Sender: MYLAN
  Company Number: DE-ORGANON-O2211DEU000871

PATIENT
  Age: 32 Year
  Sex: Male

DRUGS (1)
  1. FINASTERIDE [Suspect]
     Active Substance: FINASTERIDE
     Indication: Alopecia
     Dosage: 1 DOSAGE FORM, QD  (1 TABLET EVERY DAY)
     Route: 048
     Dates: end: 2014

REACTIONS (10)
  - Suicidal ideation [Unknown]
  - Erectile dysfunction [Unknown]
  - Feeling abnormal [Not Recovered/Not Resolved]
  - Insomnia [Not Recovered/Not Resolved]
  - Decreased interest [Unknown]
  - Male orgasmic disorder [Unknown]
  - Hypoaesthesia [Unknown]
  - Pain [Unknown]
  - Depression [Unknown]
  - Libido decreased [Unknown]
